FAERS Safety Report 23160017 (Version 1)
Quarter: 2023Q4

REPORT INFORMATION
  Report Type: Spontaneous
  Country: US (occurrence: US)
  Receive Date: 20231108
  Receipt Date: 20231108
  Transmission Date: 20240110
  Serious: No
  Sender: FDA-Public Use
  Company Number: US-TEVA-2023-US-2938768

PATIENT
  Age: 15 Year
  Sex: Female

DRUGS (1)
  1. APRI [Suspect]
     Active Substance: DESOGESTREL\ETHINYL ESTRADIOL
     Indication: Headache
     Dosage: 0.15-0.03 MG-MG
     Route: 065

REACTIONS (2)
  - Vomiting [Unknown]
  - Product use in unapproved indication [Unknown]
